FAERS Safety Report 12530052 (Version 1)
Quarter: 2016Q3

REPORT INFORMATION
  Report Type: Other
  Country: US (occurrence: US)
  Receive Date: 20160706
  Receipt Date: 20160706
  Transmission Date: 20161109
  Serious: Yes (Hospitalization)
  Sender: FDA-Public Use
  Company Number: US-LUPIN PHARMACEUTICALS INC.-2016-02955

PATIENT
  Age: 86 Year
  Sex: Male

DRUGS (2)
  1. VANCOMYCIN [Suspect]
     Active Substance: VANCOMYCIN
     Indication: ARTHRITIS INFECTIVE
     Route: 042
  2. VANCOMYCIN/TOBRAMYCIN [Concomitant]
     Indication: ARTHRITIS INFECTIVE
     Route: 065

REACTIONS (1)
  - Linear IgA disease [Recovering/Resolving]
